FAERS Safety Report 5151935-6 (Version None)
Quarter: 2006Q4

REPORT INFORMATION
  Report Type: 
  Country: None (occurrence: None)
  Receive Date: 20061107
  Receipt Date: 20061023
  Transmission Date: 20070319
  Serious: Yes (Death)
  Sender: FDA-Public Use
  Company Number: B0443335A

PATIENT
  Age: 42 Year
  Sex: 0

DRUGS (2)
  1. LAMICTAL [Suspect]
     Dosage: ORAL
     Route: 048
  2. ETHYLENE GLYCOL                                      (ETHYLENE GLYCOL) [Suspect]
     Dosage: ORAL
     Route: 048

REACTIONS (1)
  - COMPLETED SUICIDE [None]
